FAERS Safety Report 17011745 (Version 1)
Quarter: 2019Q4

REPORT INFORMATION
  Report Type: Spontaneous
  Country: PT (occurrence: PT)
  Receive Date: 20191108
  Receipt Date: 20191108
  Transmission Date: 20200122
  Serious: Yes (Other)
  Sender: FDA-Public Use
  Company Number: PT-US-PROVELL PHARMACEUTICALS LLC-E2B_90072083

PATIENT
  Age: 40 Year
  Sex: Female

DRUGS (1)
  1. EUTIROX [Suspect]
     Active Substance: LEVOTHYROXINE SODIUM
     Indication: THYROIDITIS
     Route: 048

REACTIONS (6)
  - Nausea [Unknown]
  - Palpitations [Unknown]
  - Abdominal pain [Unknown]
  - Dyspepsia [Recovering/Resolving]
  - Flatulence [Unknown]
  - Abdominal pain upper [Unknown]

NARRATIVE: CASE EVENT DATE: 20191018
